FAERS Safety Report 6966808-3 (Version None)
Quarter: 2010Q3

REPORT INFORMATION
  Report Type: 
  Country: None (occurrence: None)
  Receive Date: 20100906
  Receipt Date: 20100824
  Transmission Date: 20110219
  Serious: Yes (Hospitalization)
  Sender: FDA-Public Use
  Company Number: NL-GENZYME-CLOF-1001155

PATIENT
  Sex: Female
  Weight: 55 kg

DRUGS (13)
  1. EVOLTRA [Suspect]
     Indication: ACUTE LEUKAEMIA
     Dosage: 20 MG/M2, UNK
  2. PEG-ASPARAGINASE [Suspect]
     Indication: ACUTE LEUKAEMIA
     Dosage: 600 IU, UNK
     Route: 042
     Dates: start: 20100721, end: 20100803
  3. DAUNORUBICIN HCL [Suspect]
     Indication: ACUTE LEUKAEMIA
     Dosage: 65 MG, UNK
     Route: 042
     Dates: start: 20100728, end: 20100804
  4. PREDNISOLONE [Suspect]
     Indication: ACUTE LEUKAEMIA
     Dosage: 65 MG, UNK
     Route: 048
     Dates: start: 20100721, end: 20100817
  5. DEXAMETHASONE [Suspect]
     Indication: ACUTE LEUKAEMIA
     Dosage: 4 MG, UNK
     Route: 037
     Dates: start: 20100727, end: 20100810
  6. METHOTREXATE [Suspect]
     Indication: ACUTE LEUKAEMIA
     Dosage: 15 MG, UNK
     Route: 037
     Dates: start: 20100727, end: 20100810
  7. VINCRISTINE [Suspect]
     Indication: ACUTE LEUKAEMIA
     Dosage: 2 MG, UNK
     Route: 042
     Dates: start: 20100721, end: 20100811
  8. ESOMEPRAZOLE MAGNESIUM [Concomitant]
     Indication: PRODUCT USED FOR UNKNOWN INDICATION
     Dosage: 40 MG, UNK
     Route: 048
     Dates: start: 20100812, end: 20100822
  9. ACETAMINOPHEN [Concomitant]
     Indication: PRODUCT USED FOR UNKNOWN INDICATION
     Dosage: 500 MG, UNK
     Route: 048
     Dates: start: 20100818, end: 20100822
  10. LYNESTRENOL [Concomitant]
     Indication: PRODUCT USED FOR UNKNOWN INDICATION
     Dosage: 5 MG, UNK
     Route: 048
     Dates: start: 20100816, end: 20100822
  11. IMIPENEM AND CILASTATIN [Concomitant]
     Indication: PRODUCT USED FOR UNKNOWN INDICATION
     Dosage: 500 MG, UNK
     Route: 048
     Dates: start: 20100817, end: 20100822
  12. GANCICLOVIR [Concomitant]
     Indication: PRODUCT USED FOR UNKNOWN INDICATION
     Dosage: 500 MG, UNK
     Route: 048
     Dates: start: 20100820, end: 20100822
  13. MIRTAZAPINE [Suspect]
     Indication: PRODUCT USED FOR UNKNOWN INDICATION
     Dosage: 15 MG, UNK
     Route: 048
     Dates: start: 20100818, end: 20100822

REACTIONS (1)
  - SEROTONIN SYNDROME [None]
